FAERS Safety Report 7093216-X (Version None)
Quarter: 2010Q4

REPORT INFORMATION
  Report Type: 
  Country: None (occurrence: None)
  Receive Date: 20101110
  Receipt Date: 20101102
  Transmission Date: 20110411
  Serious: Yes (Hospitalization, Other)
  Sender: FDA-Public Use
  Company Number: NZ-BAYER-201038563GPV

PATIENT
  Age: 70 Year
  Sex: Male

DRUGS (7)
  1. SORAFENIB [Suspect]
     Indication: HEPATIC NEOPLASM MALIGNANT
  2. PLACEBO TO ERLOTINIB [Suspect]
     Indication: HEPATIC NEOPLASM MALIGNANT
  3. FRUSEMIDE [Concomitant]
     Indication: ASCITES
     Dates: start: 20100809
  4. SPIRONOLACTONE [Concomitant]
     Indication: ASCITES
     Dates: start: 20100809
  5. NADOLOL [Concomitant]
     Indication: ASCITES
     Dates: start: 20100809
  6. FORTISIP [Concomitant]
     Indication: MEDICAL DIET
     Dosage: 2 CANS
  7. ALBUMEX 20 [Concomitant]
     Dosage: 2 UNITS
     Dates: start: 20100809

REACTIONS (2)
  - ASCITES [None]
  - PERITONITIS BACTERIAL [None]
